FAERS Safety Report 23722147 (Version 1)
Quarter: 2024Q2

REPORT INFORMATION
  Report Type: Spontaneous
  Country: US (occurrence: None)
  Receive Date: 20240408
  Receipt Date: 20240408
  Transmission Date: 20240715
  Serious: Yes (Other)
  Sender: FDA-Public Use
  Company Number: None

PATIENT
  Age: 62 Year
  Sex: Female
  Weight: 66 kg

DRUGS (3)
  1. HALOPERIDOL [Suspect]
     Active Substance: HALOPERIDOL
     Indication: Aggression
     Dosage: FREQUENCY : TWICE A DAY;?
     Route: 048
     Dates: start: 20231213, end: 20240312
  2. LAMOTRIGINE [Concomitant]
     Active Substance: LAMOTRIGINE
  3. OXCARBAZEPINE [Concomitant]
     Active Substance: OXCARBAZEPINE

REACTIONS (3)
  - Restlessness [None]
  - Gait disturbance [None]
  - Cogwheel rigidity [None]

NARRATIVE: CASE EVENT DATE: 20240222
